FAERS Safety Report 19188004 (Version 2)
Quarter: 2021Q4

REPORT INFORMATION
  Report Type: Spontaneous
  Country: CA (occurrence: CA)
  Receive Date: 20210427
  Receipt Date: 20211001
  Transmission Date: 20220303
  Serious: Yes (Disabling)
  Sender: FDA-Public Use
  Company Number: CA-ALLERGAN-2116495US

PATIENT
  Sex: Female
  Weight: 58.97 kg

DRUGS (3)
  1. CITALOPRAM HYDROBROMIDE [Suspect]
     Active Substance: CITALOPRAM HYDROBROMIDE
     Indication: Depression
     Dosage: ACTUAL: 30 MG, VARRIED THROUGHOUT DURATION OF TREATMENT
     Route: 048
     Dates: start: 201310, end: 201902
  2. BUPROPION [Concomitant]
     Active Substance: BUPROPION
  3. SNRI [Concomitant]

REACTIONS (3)
  - Emotional disorder [Not Recovered/Not Resolved]
  - Genital hypoaesthesia [Not Recovered/Not Resolved]
  - Sexual dysfunction [Not Recovered/Not Resolved]

NARRATIVE: CASE EVENT DATE: 20190315
